FAERS Safety Report 17673047 (Version 1)
Quarter: 2020Q2

REPORT INFORMATION
  Report Type: Other
  Country: US (occurrence: US)
  Receive Date: 20200415
  Receipt Date: 20200415
  Transmission Date: 20200713
  Serious: Yes (Hospitalization)
  Sender: FDA-Public Use
  Company Number: US-ALKERMES INC.-ALK-2020-000660

PATIENT
  Age: 49 Year
  Sex: Male
  Weight: 74.84 kg

DRUGS (1)
  1. VIVITROL [Suspect]
     Active Substance: NALTREXONE
     Indication: ALCOHOLISM
     Dosage: 380 MG, QMO
     Route: 030
     Dates: start: 20190816

REACTIONS (2)
  - Hypersensitivity [Recovered/Resolved]
  - Pulmonary eosinophilia [Recovered/Resolved]

NARRATIVE: CASE EVENT DATE: 20190819
